FAERS Safety Report 4963023-X (Version None)
Quarter: 2006Q2

REPORT INFORMATION
  Report Type: 
  Country: None (occurrence: None)
  Receive Date: 20060405
  Receipt Date: 20060325
  Transmission Date: 20061013
  Serious: Yes (Disabling, Other)
  Sender: FDA-Public Use
  Company Number: 2006CG00581

PATIENT
  Age: 29 Year
  Sex: Male

DRUGS (1)
  1. LIDOCAINE [Suspect]
     Indication: LOCAL ANAESTHESIA
     Route: 031

REACTIONS (10)
  - CATARACT SUBCAPSULAR [None]
  - EYE PENETRATION [None]
  - INCORRECT ROUTE OF DRUG ADMINISTRATION [None]
  - INTRAOCULAR PRESSURE INCREASED [None]
  - MYDRIASIS [None]
  - POSTERIOR CAPSULE RUPTURE [None]
  - PUPILLARY REFLEX IMPAIRED [None]
  - RETINAL ARTERY SPASM [None]
  - VISUAL ACUITY REDUCED [None]
  - VITREOUS DISORDER [None]
